FAERS Safety Report 7264754-1 (Version None)
Quarter: 2011Q1

REPORT INFORMATION
  Report Type: 
  Country: None (occurrence: None)
  Receive Date: 20110131
  Receipt Date: 20110124
  Transmission Date: 20110831
  Serious: Yes (Death, Life-Threatening, Hospitalization, Disabling)
  Sender: FDA-Public Use
  Company Number: CA-BAYER-201042153NA

PATIENT
  Sex: Male

DRUGS (1)
  1. SORAFENIB (RAF KINASE INHIBITOR) [Suspect]
     Indication: HEPATIC NEOPLASM MALIGNANT
     Dosage: 200 MG, BID
     Route: 048
     Dates: start: 20100317, end: 20101123

REACTIONS (7)
  - HEPATIC FAILURE [None]
  - SEPSIS [None]
  - INTERNATIONAL NORMALISED RATIO INCREASED [None]
  - BLOOD BILIRUBIN INCREASED [None]
  - DISORIENTATION [None]
  - JAUNDICE [None]
  - EMOTIONAL DISTRESS [None]
